FAERS Safety Report 6370291-9 (Version None)
Quarter: 2009Q3

REPORT INFORMATION
  Report Type: 
  Country: None (occurrence: None)
  Receive Date: 20090921
  Receipt Date: 20090921
  Transmission Date: 20100115
  Serious: Yes (Hospitalization)
  Sender: FDA-Public Use
  Company Number: None

PATIENT
  Sex: Male
  Weight: 92.5338 kg

DRUGS (1)
  1. ENALAPRIL MALEATE [Suspect]
     Indication: HYPERTENSION
     Dosage: ONE A DAY  01-01-2006 TO 04-04-2009 OR LONGER

REACTIONS (6)
  - DYSPNOEA [None]
  - EYE SWELLING [None]
  - HYPERSOMNIA [None]
  - LIP SWELLING [None]
  - SWELLING FACE [None]
  - SWOLLEN TONGUE [None]
